FAERS Safety Report 24387205 (Version 1)
Quarter: 2024Q4

REPORT INFORMATION
  Report Type: Report from Study
  Country: CA (occurrence: CA)
  Receive Date: 20241002
  Receipt Date: 20241002
  Transmission Date: 20250115
  Serious: Yes (Other)
  Sender: TAKEDA
  Company Number: CA-TAKEDA-2023TUS114096

PATIENT
  Age: 27 Year

DRUGS (11)
  1. VEDOLIZUMAB [Suspect]
     Active Substance: VEDOLIZUMAB
     Indication: Colitis ulcerative
     Dosage: 300 MILLIGRAM
     Route: 042
     Dates: start: 20200207
  2. VEDOLIZUMAB [Suspect]
     Active Substance: VEDOLIZUMAB
     Dosage: 300 MILLIGRAM
     Route: 042
  3. VEDOLIZUMAB [Suspect]
     Active Substance: VEDOLIZUMAB
     Dosage: 300 MILLIGRAM
     Route: 042
  4. VEDOLIZUMAB [Suspect]
     Active Substance: VEDOLIZUMAB
     Dosage: 300 MILLIGRAM, Q4WEEKS
     Route: 042
     Dates: start: 20240829
  5. DOXYCYCLINE [Concomitant]
     Active Substance: DOXYCYCLINE
     Dosage: 100 MILLIGRAM, QD
  6. CORTENEMA [Concomitant]
     Active Substance: HYDROCORTISONE
     Dosage: UNK
  7. Salofalk [Concomitant]
     Dosage: UNK
  8. CYPROTERONE ACETATE [Concomitant]
     Active Substance: CYPROTERONE ACETATE
     Dosage: UNK
  9. Lupin [Concomitant]
     Dosage: UNK
  10. PROMETRIUM [Concomitant]
     Active Substance: PROGESTERONE
     Dosage: 100 MILLIGRAM
     Route: 048
     Dates: start: 20230125
  11. ESTROGENS [Concomitant]
     Active Substance: ESTROGENS
     Dosage: UNK

REACTIONS (3)
  - Vaginoplasty [Unknown]
  - No adverse event [Unknown]
  - Off label use [Unknown]

NARRATIVE: CASE EVENT DATE: 20240829
